FAERS Safety Report 6237571-9 (Version None)
Quarter: 2009Q2

REPORT INFORMATION
  Report Type: 
  Country: None (occurrence: None)
  Receive Date: 20090617
  Receipt Date: 20090601
  Transmission Date: 20091009
  Serious: Yes (Other)
  Sender: FDA-Public Use
  Company Number: 2009S1001391

PATIENT
  Age: 49 Year
  Sex: Female
  Weight: 70.7611 kg

DRUGS (8)
  1. PHOSPHOSODA FLAVOR NOT SPECIFIED [Suspect]
     Indication: COLONOSCOPY
     Dosage: PO
     Route: 048
     Dates: start: 20070131, end: 20070131
  2. BENICAR [Concomitant]
  3. ATENOLOL AND CHLORTHALIDONE [Concomitant]
  4. VERSED [Concomitant]
  5. FENTANYL-100 [Concomitant]
  6. DIPRIVAN [Concomitant]
  7. GLUCAGON [Concomitant]
  8. LIDOCAINE [Concomitant]

REACTIONS (4)
  - HYPOVOLAEMIA [None]
  - NEPHROCALCINOSIS [None]
  - NEPHROPATHY TOXIC [None]
  - RENAL FAILURE ACUTE [None]
